FAERS Safety Report 9903386 (Version 2)
Quarter: 2014Q1

REPORT INFORMATION
  Report Type: Spontaneous
  Country: US (occurrence: US)
  Receive Date: 20140217
  Receipt Date: 20140217
  Transmission Date: 20141002
  Serious: Yes (Other)
  Sender: FDA-Public Use
  Company Number: US-GILEAD-2012-0050430

PATIENT
  Age: 46 Year
  Sex: Male

DRUGS (1)
  1. LETAIRIS [Suspect]
     Indication: PRODUCT USED FOR UNKNOWN INDICATION
     Dosage: 5 MG, UNK
     Route: 048
     Dates: start: 20120105, end: 20120112

REACTIONS (5)
  - Drug hypersensitivity [Unknown]
  - Face oedema [Recovered/Resolved]
  - Eye swelling [Recovered/Resolved]
  - Asthenia [Unknown]
  - Swelling face [Unknown]
